FAERS Safety Report 9426940 (Version 1)
Quarter: 2013Q3

REPORT INFORMATION
  Report Type: Spontaneous
  Country: DK (occurrence: DK)
  Receive Date: 20130730
  Receipt Date: 20130730
  Transmission Date: 20140515
  Serious: Yes (Other)
  Sender: FDA-Public Use
  Company Number: DK-RANBAXY-2013R1-71701

PATIENT
  Age: 41 Year
  Sex: Female

DRUGS (7)
  1. FLUCONAZOLE [Suspect]
     Indication: ORAL CANDIDIASIS
     Dosage: 100 MG, QD
     Route: 065
  2. MIRTAZAPINE [Interacting]
     Indication: PRODUCT USED FOR UNKNOWN INDICATION
     Dosage: UNK
     Route: 065
  3. PREDNISOLONE [Interacting]
     Indication: PRODUCT USED FOR UNKNOWN INDICATION
     Dosage: UNK
     Route: 065
  4. ETOPOSIDE [Interacting]
     Indication: EWING^S SARCOMA
     Dosage: 900MG OVER 9 DAYS
     Route: 065
  5. IFOSFAMIDE [Interacting]
     Indication: EWING^S SARCOMA
     Dosage: 6G OVER 9 DAYS
     Route: 065
  6. VINCRISTINE [Interacting]
     Indication: EWING^S SARCOMA
     Dosage: 2 MG, SINGLE
     Route: 065
  7. DOXORUBICIN [Concomitant]
     Indication: EWING^S SARCOMA
     Dosage: UNK
     Route: 065

REACTIONS (2)
  - Neurotoxicity [Recovering/Resolving]
  - Drug interaction [Recovering/Resolving]
